FAERS Safety Report 10486260 (Version 1)
Quarter: 2014Q4

REPORT INFORMATION
  Report Type: Spontaneous
  Country: US (occurrence: US)
  Receive Date: 20141001
  Receipt Date: 20141001
  Transmission Date: 20150528
  Serious: Yes (Other)
  Sender: FDA-Public Use
  Company Number: US-SUN PHARMACEUTICAL INDUSTRIES LTD-2014SUN02184

PATIENT

DRUGS (4)
  1. CARBIDOPA + LEVODOPA ER TABS 25MG/100MG [Suspect]
     Active Substance: CARBIDOPA\LEVODOPA
     Dosage: 125 MG
     Route: 065
  2. CARBIDOPA + LEVODOPA ER TABS 25MG/100MG [Suspect]
     Active Substance: CARBIDOPA\LEVODOPA
     Indication: PARKINSON^S DISEASE
     Dosage: 25/100 MG, 1.5 TABLETS FOUR TIMES A DAY
     Route: 065
  3. CARBIDOPA + LEVODOPA ER TABS 25MG/100MG [Suspect]
     Active Substance: CARBIDOPA\LEVODOPA
     Dosage: 25/250 MG, FIVE TIMES DAILY
  4. ENTACAPONE 200 MG TABLET [Suspect]
     Active Substance: ENTACAPONE
     Indication: PARKINSON^S DISEASE
     Dosage: 200 MG, TID

REACTIONS (8)
  - Panic attack [Recovered/Resolved]
  - Obsessive-compulsive disorder [Recovered/Resolved]
  - Hallucination [Recovered/Resolved]
  - Memory impairment [Recovered/Resolved]
  - Stereotypy [Recovered/Resolved]
  - Depression [Recovered/Resolved]
  - Hypersexuality [Recovered/Resolved]
  - Dyskinesia [Recovered/Resolved]
